FAERS Safety Report 5724794-8 (Version None)
Quarter: 2008Q2

REPORT INFORMATION
  Report Type: 
  Country: None (occurrence: None)
  Receive Date: 20080501
  Receipt Date: 20080422
  Transmission Date: 20081010
  Serious: Yes (Hospitalization)
  Sender: FDA-Public Use
  Company Number: US-JNJFOC-20080306317

PATIENT
  Sex: Male
  Weight: 25.5 kg

DRUGS (7)
  1. INFLIXIMAB [Suspect]
     Route: 042
  2. INFLIXIMAB [Suspect]
     Route: 042
  3. INFLIXIMAB [Suspect]
     Indication: INFLAMMATORY BOWEL DISEASE
     Route: 042
  4. INFLIXIMAB [Suspect]
     Indication: CROHN'S DISEASE
     Route: 042
  5. MERCAPTOPURINE [Concomitant]
     Indication: INFLAMMATORY BOWEL DISEASE
  6. FOLIC ACID [Concomitant]
  7. FERROUS SULFATE TAB [Concomitant]

REACTIONS (4)
  - DEHYDRATION [None]
  - GASTROENTERITIS [None]
  - HEADACHE [None]
  - PHARYNGITIS STREPTOCOCCAL [None]
